FAERS Safety Report 9522209 (Version 2)
Quarter: 2013Q4

REPORT INFORMATION
  Report Type: Spontaneous
  Country: SI (occurrence: SI)
  Receive Date: 20130913
  Receipt Date: 20131015
  Transmission Date: 20140711
  Serious: Yes (Death, Life-Threatening, Hospitalization, Other)
  Sender: FDA-Public Use
  Company Number: SI-MERCK-1309SVN005694

PATIENT
  Age: 64 Year
  Sex: Female

DRUGS (5)
  1. JANUVIA [Suspect]
     Indication: DIABETES MELLITUS
     Dosage: 100 MG, QD
     Route: 048
     Dates: start: 20090927, end: 20101130
  2. MAREVAN [Concomitant]
  3. CORYOL [Concomitant]
     Dosage: UNK, BID
  4. COZAAR 100MG [Concomitant]
     Route: 048
  5. SORTIS [Concomitant]

REACTIONS (2)
  - Pancreatic carcinoma [Fatal]
  - Drug ineffective [Unknown]
